FAERS Safety Report 8075824-2 (Version None)
Quarter: 2012Q1

REPORT INFORMATION
  Report Type: 
  Country: None (occurrence: None)
  Receive Date: 20120127
  Receipt Date: 20120116
  Transmission Date: 20120608
  Serious: Yes (Other)
  Sender: FDA-Public Use
  Company Number: US-PERRIGO-12US000347

PATIENT
  Sex: Female
  Weight: 145.13 kg

DRUGS (2)
  1. CETIRIZINE HCL [Suspect]
     Indication: RHINORRHOEA
     Dosage: 10 MG, SINGLE
     Route: 048
     Dates: start: 20120115, end: 20120115
  2. CETIRIZINE HCL [Suspect]
     Indication: LACRIMATION INCREASED

REACTIONS (2)
  - VISION BLURRED [None]
  - HALO VISION [None]
